FAERS Safety Report 4968244-8 (Version None)
Quarter: 2006Q2

REPORT INFORMATION
  Report Type: 
  Country: None (occurrence: None)
  Receive Date: 20060405
  Receipt Date: 20060307
  Transmission Date: 20061013
  Serious: Yes (Death)
  Sender: FDA-Public Use
  Company Number: 2006043931

PATIENT
  Sex: Male

DRUGS (9)
  1. ZELDOX (CAPSULES) (ZIPRASIDONE) [Suspect]
     Indication: SCHIZOPHRENIA, PARANOID TYPE
     Dosage: 80 MG (DAILY), ORAL
     Route: 048
     Dates: start: 20011129
  2. REMERON [Suspect]
     Indication: SCHIZOPHRENIA, PARANOID TYPE
     Dates: start: 20020127
  3. EFFEXOR [Suspect]
     Indication: SCHIZOPHRENIA, PARANOID TYPE
     Dosage: 75 MG (DAILY), ORAL
     Route: 048
  4. OXAPAX (OXAZEPAM) [Concomitant]
  5. CLONAZEPAM [Concomitant]
  6. NOZINAN (LEVOMEPROMAZINE) [Concomitant]
  7. ZOPICLONE (ZOPICLONE) [Concomitant]
  8. ACETAMINOPHEN [Concomitant]
  9. MANDOLGIN (TRAMADOL) [Concomitant]

REACTIONS (1)
  - SUDDEN DEATH [None]
